FAERS Safety Report 23088573 (Version 2)
Quarter: 2023Q4

REPORT INFORMATION
  Report Type: Spontaneous
  Country: VN (occurrence: VN)
  Receive Date: 20231020
  Receipt Date: 20231106
  Transmission Date: 20240110
  Serious: Yes (Death, Hospitalization, Other)
  Sender: FDA-Public Use
  Company Number: VN-SA-SAC20231019000911

PATIENT
  Age: 4 Year
  Sex: Male
  Weight: 16 kg

DRUGS (9)
  1. MYOZYME [Suspect]
     Active Substance: ALGLUCOSIDASE ALFA
     Indication: Glycogen storage disease type II
     Dosage: 20 MG/KG, Q15D
     Route: 041
     Dates: start: 20201113
  2. MYOZYME [Suspect]
     Active Substance: ALGLUCOSIDASE ALFA
     Dosage: 30 MG/KG, Q15D(8 VIALS, 50MG/VIAL)
     Route: 041
     Dates: start: 20230406, end: 20230925
  3. IMIPENEM [Concomitant]
     Active Substance: IMIPENEM
     Indication: Premedication
     Dosage: UNK
  4. VANCOMYCIN [Concomitant]
     Active Substance: VANCOMYCIN
     Indication: Premedication
     Dosage: UNK
  5. LEVOFLOXACIN [Concomitant]
     Active Substance: LEVOFLOXACIN
     Indication: Premedication
     Dosage: UNK
  6. MEROPENEM [Concomitant]
     Active Substance: MEROPENEM
     Indication: Premedication
     Dosage: UNK
  7. CIPROFLOXACIN [Concomitant]
     Active Substance: CIPROFLOXACIN
     Indication: Premedication
     Dosage: UNK
  8. CEFEPIME HYDROCHLORIDE [Concomitant]
     Active Substance: CEFEPIME HYDROCHLORIDE
     Indication: Premedication
     Dosage: UNK
  9. COLISTIN [Concomitant]
     Active Substance: COLISTIN
     Indication: Premedication
     Dosage: UNK

REACTIONS (7)
  - Pneumonia [Fatal]
  - Dyspnoea [Fatal]
  - Cough [Fatal]
  - Pyrexia [Fatal]
  - Oxygen saturation decreased [Fatal]
  - Lung opacity [Unknown]
  - Wrong technique in product usage process [Unknown]

NARRATIVE: CASE EVENT DATE: 20230301
